FAERS Safety Report 5121236-0 (Version None)
Quarter: 2006Q4

REPORT INFORMATION
  Report Type: 
  Country: None (occurrence: None)
  Receive Date: 20061005
  Receipt Date: 20060828
  Transmission Date: 20070319
  Serious: Yes (Hospitalization, Other)
  Sender: FDA-Public Use
  Company Number: US-AMGEN-US191429

PATIENT
  Sex: Male
  Weight: 55.8 kg

DRUGS (8)
  1. ENBREL [Suspect]
     Indication: ANKYLOSING SPONDYLITIS
     Route: 065
     Dates: start: 20040920, end: 20060515
  2. MISOPROSTOL [Concomitant]
     Route: 065
  3. MULTIVIT [Concomitant]
     Route: 065
  4. SALSALATE [Concomitant]
     Route: 065
     Dates: start: 20040101
  5. SYNTHROID [Concomitant]
     Route: 065
  6. ZOCOR [Concomitant]
     Route: 065
  7. FLEXERIL [Concomitant]
     Route: 065
  8. RISPERDAL [Concomitant]
     Route: 065

REACTIONS (2)
  - DISSEMINATED TUBERCULOSIS [None]
  - PNEUMONIA [None]
